FAERS Safety Report 9337322 (Version 1)
Quarter: 2013Q2

REPORT INFORMATION
  Report Type: Spontaneous
  Country: MX (occurrence: MX)
  Receive Date: 20130607
  Receipt Date: 20130607
  Transmission Date: 20140414
  Serious: Yes (Other)
  Sender: FDA-Public Use
  Company Number: MX-JNJFOC-20130508531

PATIENT
  Age: 60 Year
  Sex: Female
  Weight: 65 kg

DRUGS (5)
  1. REMICADE [Suspect]
     Indication: PSORIATIC ARTHROPATHY
     Dosage: ALSO REPORTED AS 200MG
     Route: 042
     Dates: start: 20130412, end: 20130413
  2. PARACETAMOL [Concomitant]
     Route: 048
     Dates: start: 20130412
  3. HYDROCORTISONE [Concomitant]
     Route: 042
     Dates: start: 20130412
  4. RANISEN [Concomitant]
     Route: 042
     Dates: start: 20130412
  5. CLOROTRIMETON [Concomitant]
     Route: 042
     Dates: start: 20130412

REACTIONS (4)
  - Rash generalised [Recovered/Resolved]
  - Chest discomfort [Recovered/Resolved]
  - Oropharyngeal pain [Recovered/Resolved]
  - Erythema [Recovered/Resolved]
